FAERS Safety Report 16095881 (Version 1)
Quarter: 2019Q2

REPORT INFORMATION
  Report Type: Spontaneous
  Country: US (occurrence: US)
  Receive Date: 20190320
  Receipt Date: 20190320
  Transmission Date: 20190711
  Serious: Yes (Disabling, Other)
  Sender: FDA-Public Use
  Company Number: None

PATIENT
  Age: 56 Year
  Sex: Female
  Weight: 56.7 kg

DRUGS (7)
  1. CBD OIL [Concomitant]
     Active Substance: CANNABIDIOL\HERBALS
  2. ASPRIN [Concomitant]
     Active Substance: ASPIRIN
  3. TRAZODONE [Concomitant]
     Active Substance: TRAZODONE HYDROCHLORIDE
  4. VITAMIN D NOS [Concomitant]
     Active Substance: VITAMIN D NOS
  5. DULOXETINE. [Concomitant]
     Active Substance: DULOXETINE
  6. GADAVIST [Suspect]
     Active Substance: GADOBUTROL
  7. METFORMIN [Concomitant]
     Active Substance: METFORMIN HYDROCHLORIDE

REACTIONS (18)
  - Headache [None]
  - Vibratory sense increased [None]
  - Neck pain [None]
  - Flushing [None]
  - Liver disorder [None]
  - Feeling hot [None]
  - Bone pain [None]
  - Burning sensation [None]
  - Nausea [None]
  - Myalgia [None]
  - Cognitive disorder [None]
  - Visual impairment [None]
  - Dizziness [None]
  - Disturbance in attention [None]
  - Pain in extremity [None]
  - Arthralgia [None]
  - Contrast media deposition [None]
  - Pain [None]

NARRATIVE: CASE EVENT DATE: 20190218
